FAERS Safety Report 16327993 (Version 1)
Quarter: 2019Q2

REPORT INFORMATION
  Report Type: Spontaneous
  Country: ES (occurrence: ES)
  Receive Date: 20190518
  Receipt Date: 20190518
  Transmission Date: 20190711
  Serious: Yes (Hospitalization)
  Sender: FDA-Public Use
  Company Number: ES-ROCHE-2321101

PATIENT
  Age: 76 Year
  Sex: Male

DRUGS (6)
  1. ZELBORAF [Suspect]
     Active Substance: VEMURAFENIB
     Indication: ERDHEIM-CHESTER DISEASE
     Route: 048
     Dates: start: 20180502, end: 20190214
  2. ALENDRONATO SODICO [Concomitant]
     Indication: OSTEOPOROSIS
     Route: 048
     Dates: start: 201809
  3. ACFOL [Concomitant]
     Active Substance: FOLIC ACID
     Indication: ANAEMIA
     Route: 048
     Dates: start: 201809, end: 20190204
  4. TRAZODONA CLORHIDRATO [Concomitant]
     Indication: DEPRESSION
     Route: 048
     Dates: start: 201804, end: 20190207
  5. PREDNISONA [Concomitant]
     Active Substance: PREDNISONE
     Indication: HISTIOCYTOSIS
     Route: 048
     Dates: start: 20170908
  6. OMEPRAZOLE. [Concomitant]
     Active Substance: OMEPRAZOLE
     Indication: PROPHYLAXIS
     Route: 048
     Dates: start: 201804

REACTIONS (1)
  - Cardiac failure [Recovered/Resolved]

NARRATIVE: CASE EVENT DATE: 201812
